FAERS Safety Report 4485349-9 (Version None)
Quarter: 2004Q3

REPORT INFORMATION
  Report Type: 
  Country: None (occurrence: None)
  Receive Date: 20040921
  Receipt Date: 20040511
  Transmission Date: 20050211
  Serious: Yes (Hospitalization)
  Sender: FDA-Public Use
  Company Number: 163-20785-04050276

PATIENT
  Age: 50 Year
  Sex: Female
  Weight: 55.7924 kg

DRUGS (2)
  1. THALOMID [Suspect]
     Indication: COLORECTAL CANCER METASTATIC
     Dosage: 400 MG, DAILY, ORAL
     Route: 048
     Dates: start: 20040207
  2. XELODA [Suspect]
     Indication: COLORECTAL CANCER METASTATIC
     Dosage: 1750 MG/M2, 3 WEEK CYCLE (2 WEEKS ON AND 1 WEEK, OFF,
     Dates: start: 20040207

REACTIONS (10)
  - BACK PAIN [None]
  - BLOOD GLUCOSE DECREASED [None]
  - DEHYDRATION [None]
  - DYSPNOEA [None]
  - ESCHERICHIA URINARY TRACT INFECTION [None]
  - HAEMOGLOBIN DECREASED [None]
  - MARKEDLY REDUCED DIETARY INTAKE [None]
  - METASTASES TO LIVER [None]
  - SYNCOPE [None]
  - VOMITING [None]
